FAERS Safety Report 13002490 (Version 1)
Quarter: 2016Q4

REPORT INFORMATION
  Report Type: Spontaneous
  Country: EG (occurrence: EG)
  Receive Date: 20161206
  Receipt Date: 20161206
  Transmission Date: 20170207
  Serious: Yes (Hospitalization, Other)
  Sender: FDA-Public Use
  Company Number: EG-JNJFOC-20161201216

PATIENT

DRUGS (1)
  1. DOXORUBICIN HYDROCHLORIDE. [Suspect]
     Active Substance: DOXORUBICIN HYDROCHLORIDE
     Indication: HEPATOCELLULAR CARCINOMA
     Route: 013

REACTIONS (10)
  - Nausea [Recovered/Resolved]
  - Product use issue [Unknown]
  - Off label use [Unknown]
  - Vomiting [Recovered/Resolved]
  - Pain [Recovered/Resolved]
  - Ascites [Unknown]
  - Pyrexia [Recovered/Resolved]
  - Hepatic enzyme increased [Unknown]
  - Decreased appetite [Recovered/Resolved]
  - Incorrect route of drug administration [Unknown]
